FAERS Safety Report 8515914-0 (Version None)
Quarter: 2012Q3

REPORT INFORMATION
  Report Type: 
  Country: None (occurrence: None)
  Receive Date: 20120717
  Receipt Date: 20120711
  Transmission Date: 20120928
  Serious: Yes (Other)
  Sender: FDA-Public Use
  Company Number: US-JNJFOC-20120613421

PATIENT
  Age: 69 Year
  Sex: Female

DRUGS (5)
  1. CELEBREX [Concomitant]
  2. PHENERGAN HCL [Concomitant]
  3. XARELTO [Suspect]
     Indication: EMBOLISM VENOUS
     Route: 048
  4. ULTRAM [Suspect]
     Indication: PRODUCT USED FOR UNKNOWN INDICATION
     Route: 065
  5. XARELTO [Suspect]
     Indication: ORTHOPEDIC PROCEDURE
     Route: 048

REACTIONS (4)
  - SWELLING [None]
  - HAEMORRHAGE [None]
  - PAIN IN EXTREMITY [None]
  - CONTUSION [None]
